FAERS Safety Report 4422051-3 (Version None)
Quarter: 2004Q3

REPORT INFORMATION
  Report Type: 
  Country: None (occurrence: None)
  Receive Date: 20040806
  Receipt Date: 20040726
  Transmission Date: 20050211
  Serious: Yes (Hospitalization)
  Sender: FDA-Public Use
  Company Number: A0519658A

PATIENT
  Age: 52 Year
  Sex: Male
  Weight: 77.1569 kg

DRUGS (1)
  1. GAVISCON [Suspect]
     Indication: GASTROOESOPHAGEAL REFLUX DISEASE
     Dosage: UNK, AS REQUIRED; ORAL
     Route: 048
     Dates: start: 20030101, end: 20030101

REACTIONS (2)
  - NEPHROLITHIASIS [None]
  - PAIN [None]
